FAERS Safety Report 9455833 (Version 1)
Quarter: 2013Q3

REPORT INFORMATION
  Report Type: Spontaneous
  Country: US (occurrence: US)
  Receive Date: 20130813
  Receipt Date: 20130813
  Transmission Date: 20140515
  Serious: No
  Sender: FDA-Public Use
  Company Number: US-JNJFOC-20130800657

PATIENT
  Age: 27 Year
  Sex: Female
  Weight: 81.65 kg

DRUGS (3)
  1. DURAGESIC [Suspect]
     Indication: PAIN
     Route: 062
     Dates: start: 201306
  2. SYNTHROID [Concomitant]
     Indication: THYROID HORMONE REPLACEMENT THERAPY
     Route: 065
     Dates: start: 2009
  3. DILAUDID [Concomitant]
     Indication: PAIN
     Route: 065
     Dates: start: 201306

REACTIONS (8)
  - Discomfort [Recovered/Resolved]
  - Drug withdrawal syndrome [Recovered/Resolved]
  - Restlessness [Recovered/Resolved]
  - Back pain [Recovered/Resolved]
  - Treatment noncompliance [Unknown]
  - Incorrect drug administration duration [Unknown]
  - Headache [Recovered/Resolved]
  - Arthralgia [Recovered/Resolved]
